FAERS Safety Report 21961520 (Version 2)
Quarter: 2023Q1

REPORT INFORMATION
  Report Type: Spontaneous
  Country: US (occurrence: US)
  Receive Date: 20230207
  Receipt Date: 20230308
  Transmission Date: 20230417
  Serious: Yes (Death, Life-Threatening, Hospitalization, Disabling, Other)
  Sender: FDA-Public Use
  Company Number: US-009507513-2302USA000478

PATIENT
  Sex: Female

DRUGS (2)
  1. KEYTRUDA [Suspect]
     Active Substance: PEMBROLIZUMAB
     Indication: Metastatic malignant melanoma
     Dosage: STRENGTH: 100 MG, 200MG/EVERY 21 DAYS (RECEIVED 2 INFUSIONS)
     Route: 042
     Dates: start: 2022, end: 202212
  2. KEYTRUDA [Suspect]
     Active Substance: PEMBROLIZUMAB
     Dosage: 200 UNK
     Dates: start: 2022

REACTIONS (5)
  - Diabetic ketoacidosis [Fatal]
  - Sepsis [Unknown]
  - Eyelid ptosis [Not Recovered/Not Resolved]
  - Posture abnormal [Not Recovered/Not Resolved]
  - Heart rate decreased [Not Recovered/Not Resolved]
